FAERS Safety Report 9678453 (Version 3)
Quarter: 2014Q1

REPORT INFORMATION
  Report Type: Spontaneous
  Country: IT (occurrence: IT)
  Receive Date: 20131108
  Receipt Date: 20140310
  Transmission Date: 20141002
  Serious: Yes (Hospitalization, Other)
  Sender: FDA-Public Use
  Company Number: IT-BRISTOL-MYERS SQUIBB COMPANY-19703859

PATIENT
  Age: 54 Year
  Sex: Female
  Weight: 45 kg

DRUGS (2)
  1. YERVOY [Suspect]
     Indication: MALIGNANT MELANOMA
     Route: 042
     Dates: start: 20130404, end: 20130614
  2. ESOMEPRAZOLE MAGNESIUM [Concomitant]
     Indication: PREMEDICATION
     Dosage: INJ SOL.
     Route: 042
     Dates: start: 20130614

REACTIONS (5)
  - Gastrointestinal necrosis [Recovered/Resolved with Sequelae]
  - Diarrhoea [Unknown]
  - Malignant neoplasm progression [Unknown]
  - Rectal polyp [Unknown]
  - Colitis [Unknown]
